APPROVED DRUG PRODUCT: FENOFIBRATE
Active Ingredient: FENOFIBRATE
Strength: 40MG
Dosage Form/Route: TABLET;ORAL
Application: A217732 | Product #001 | TE Code: AB
Applicant: CREEKWOOD PHARMACEUTICALS LLC
Approved: Sep 7, 2023 | RLD: No | RS: No | Type: RX